FAERS Safety Report 8483568-8 (Version None)
Quarter: 2012Q3

REPORT INFORMATION
  Report Type: 
  Country: None (occurrence: None)
  Receive Date: 20120702
  Receipt Date: 20120629
  Transmission Date: 20120928
  Serious: Yes (Hospitalization, Disabling, Other)
  Sender: FDA-Public Use
  Company Number: US-MERCK-1012USA01898

PATIENT
  Age: 51 Year
  Sex: Female
  Weight: 81 kg

DRUGS (4)
  1. ALENDRONATE SODIUM [Suspect]
     Indication: OSTEOPENIA
     Route: 048
     Dates: start: 20080301, end: 20100101
  2. ALENDRONATE SODIUM [Suspect]
     Indication: OSTEOPOROSIS
     Route: 048
     Dates: start: 20080301, end: 20100101
  3. FOSAMAX [Suspect]
     Indication: OSTEOPOROSIS
     Route: 048
     Dates: start: 19970101, end: 20040101
  4. FOSAMAX [Suspect]
     Route: 048
     Dates: start: 20040301, end: 20080101

REACTIONS (50)
  - ASTHENIA [None]
  - RENAL CYST HAEMORRHAGE [None]
  - HYPERCHOLESTEROLAEMIA [None]
  - LIGAMENT SPRAIN [None]
  - BLADDER DISORDER [None]
  - BALANCE DISORDER [None]
  - DIZZINESS [None]
  - LOSS OF CONSCIOUSNESS [None]
  - VERTEBRAL FORAMINAL STENOSIS [None]
  - ARTHROPATHY [None]
  - ADVERSE EVENT [None]
  - ROTATOR CUFF SYNDROME [None]
  - INTERVERTEBRAL DISC DEGENERATION [None]
  - ERYTHEMA [None]
  - NEUROPATHY PERIPHERAL [None]
  - TACHYCARDIA [None]
  - HYPERTENSION [None]
  - FEMUR FRACTURE [None]
  - DYSPEPSIA [None]
  - GASTROOESOPHAGEAL REFLUX DISEASE [None]
  - INTERVERTEBRAL DISC PROTRUSION [None]
  - FALL [None]
  - CEREBRAL ISCHAEMIA [None]
  - INTERVERTEBRAL DISC DISORDER [None]
  - RADIUS FRACTURE [None]
  - ADVERSE DRUG REACTION [None]
  - CONFUSIONAL STATE [None]
  - DRUG HYPERSENSITIVITY [None]
  - PAIN IN EXTREMITY [None]
  - BURSITIS [None]
  - SPINAL OSTEOARTHRITIS [None]
  - SCIATICA [None]
  - EPICONDYLITIS [None]
  - HEADACHE [None]
  - GASTRITIS [None]
  - RETINAL DETACHMENT [None]
  - RASH [None]
  - HEPATIC STEATOSIS [None]
  - FOOD ALLERGY [None]
  - AMNESIA [None]
  - HEAD INJURY [None]
  - COAGULOPATHY [None]
  - COLON ADENOMA [None]
  - COLONIC POLYP [None]
  - DEPRESSION [None]
  - MUSCLE STRAIN [None]
  - URINARY TRACT INFECTION [None]
  - INSOMNIA [None]
  - RENAL CYST [None]
  - ABDOMINAL DISCOMFORT [None]
